FAERS Safety Report 5165800-1 (Version None)
Quarter: 2006Q4

REPORT INFORMATION
  Report Type: 
  Country: None (occurrence: None)
  Receive Date: 20061128
  Receipt Date: 20061115
  Transmission Date: 20070319
  Serious: Yes (Hospitalization, Other)
  Sender: FDA-Public Use
  Company Number: 2006142148

PATIENT
  Sex: Male
  Weight: 156.491 kg

DRUGS (8)
  1. NEURONTIN [Suspect]
     Indication: DIABETIC NEUROPATHY
     Dates: start: 20060101
  2. LYRICA [Suspect]
     Indication: DIABETIC NEUROPATHY
     Dosage: 150 MG (50 MG, 3 OR 4 TIMES A DAY)
     Dates: start: 20060101
  3. SPIRONOLACTONE [Suspect]
     Indication: FLUID RETENTION
     Dates: start: 20060101, end: 20060101
  4. HYZAAR [Concomitant]
  5. FUROSEMIDE [Concomitant]
  6. METOLAZONE [Concomitant]
  7. ZOCOR [Concomitant]
  8. POTASSIUM ACETATE [Concomitant]

REACTIONS (8)
  - BREAST PAIN [None]
  - CELLULITIS [None]
  - DIABETIC NEUROPATHY [None]
  - DRUG DOSE OMISSION [None]
  - DRUG EFFECT DECREASED [None]
  - FLUID RETENTION [None]
  - NERVE COMPRESSION [None]
  - PARAESTHESIA [None]
